FAERS Safety Report 14897357 (Version 2)
Quarter: 2018Q4

REPORT INFORMATION
  Report Type: Report from Study
  Country: US (occurrence: US)
  Receive Date: 20180515
  Receipt Date: 20181225
  Transmission Date: 20190204
  Serious: Yes (Hospitalization)
  Sender: FDA-Public Use
  Company Number: US-TAKEDA-2018TUS016729

PATIENT
  Sex: Female
  Weight: 51.7 kg

DRUGS (1)
  1. VEDOLIZUMAB [Suspect]
     Active Substance: VEDOLIZUMAB
     Indication: CROHN^S DISEASE
     Dosage: UNK
     Route: 065
     Dates: start: 20180302, end: 20181124

REACTIONS (4)
  - Crohn^s disease [Unknown]
  - Fistula [Unknown]
  - Pregnancy [Recovered/Resolved]
  - Abscess [Unknown]
